FAERS Safety Report 8577462-1 (Version None)
Quarter: 2012Q3

REPORT INFORMATION
  Report Type: 
  Country: None (occurrence: None)
  Receive Date: 20120807
  Receipt Date: 20120801
  Transmission Date: 20120928
  Serious: Yes (Death, Hospitalization)
  Sender: FDA-Public Use
  Company Number: GB-TEVA-351963ISR

PATIENT
  Age: 47 Year
  Sex: Male
  Weight: 101 kg

DRUGS (4)
  1. ZYPREXA [Suspect]
     Indication: SCHIZOPHRENIA
  2. OLANZAPINE [Suspect]
     Indication: SCHIZOPHRENIA
     Dosage: 25MG, UNK
     Route: 048
     Dates: end: 20111128
  3. OLANZAPINE [Suspect]
     Dosage: 20MG, UNK
     Route: 048
     Dates: start: 20111130
  4. MORPHINE SULFATE [Concomitant]

REACTIONS (6)
  - MULTI-ORGAN FAILURE [None]
  - CONFUSIONAL STATE [None]
  - INCORRECT DRUG ADMINISTRATION DURATION [None]
  - SYSTEMIC CANDIDA [None]
  - MEGACOLON [None]
  - OFF LABEL USE [None]
